FAERS Safety Report 19063370 (Version 1)
Quarter: 2021Q1

REPORT INFORMATION
  Report Type: Report from Study
  Country: HN (occurrence: HN)
  Receive Date: 20210326
  Receipt Date: 20210326
  Transmission Date: 20210420
  Serious: Yes (Other)
  Sender: FDA-Public Use
  Company Number: NVSC2021HN061575

PATIENT
  Age: 57 Year
  Sex: Male

DRUGS (1)
  1. EXFORGE HCT [Suspect]
     Active Substance: AMLODIPINE BESYLATE\HYDROCHLOROTHIAZIDE\VALSARTAN
     Indication: PRODUCT USED FOR UNKNOWN INDICATION
     Dosage: 1 DF
     Route: 065
     Dates: start: 2019

REACTIONS (7)
  - Neuropathy peripheral [Unknown]
  - Cardiomyopathy [Unknown]
  - Drug ineffective [Unknown]
  - Skin ulcer [Unknown]
  - Gait disturbance [Unknown]
  - Diabetes mellitus [Unknown]
  - Hypoaesthesia [Unknown]
